FAERS Safety Report 9583995 (Version 1)
Quarter: 2013Q4

REPORT INFORMATION
  Report Type: Spontaneous
  Country: US (occurrence: US)
  Receive Date: 20131002
  Receipt Date: 20131002
  Transmission Date: 20140711
  Serious: No
  Sender: FDA-Public Use
  Company Number: US-AMGEN-USASP2013051346

PATIENT
  Age: 57 Year
  Sex: Male
  Weight: 75.74 kg

DRUGS (5)
  1. ENBREL [Suspect]
     Indication: PRODUCT USED FOR UNKNOWN INDICATION
     Dosage: 50 MG, QWK
     Route: 058
  2. OMEPRAZOLE [Concomitant]
     Dosage: 20 MG, UNK
  3. TRAMADOL HCL [Concomitant]
     Dosage: 50 MG, UNK
  4. PREDNISONE [Concomitant]
     Dosage: 1 MG, UNK
  5. OXYCONTIN [Concomitant]
     Dosage: 60 MG, UNK

REACTIONS (1)
  - Arthralgia [Unknown]
